FAERS Safety Report 19130130 (Version 1)
Quarter: 2021Q2

REPORT INFORMATION
  Report Type: Spontaneous
  Country: CH (occurrence: CH)
  Receive Date: 20210413
  Receipt Date: 20210413
  Transmission Date: 20210717
  Serious: Yes (Hospitalization)
  Sender: FDA-Public Use
  Company Number: CH-SA-2021SA112495

PATIENT
  Age: 89 Year
  Sex: Male

DRUGS (11)
  1. KCL [Concomitant]
     Active Substance: POTASSIUM CHLORIDE
     Dosage: KCL RET. DRAG. 10MMOL (KALIUM) 2 ? 2 ? 2 ? 2 VOM 07.02.21 BIS 08.02.21
  2. DAFALGAN [Concomitant]
     Active Substance: ACETAMINOPHEN
     Dosage: DAFALGAN TBL. 500MG (PARACETAMOL) 1 ? 1 ? 1 ? 1 07.02.21 ? 08.02.21
     Dates: start: 20210207, end: 20210208
  3. SPIRONOLACTONE. [Concomitant]
     Active Substance: SPIRONOLACTONE
     Dosage: ALDACTONE TBL. 25MG (SPIRONOLACTON) 1 ? 0 ? 0 ? 0 BIS 08.02.21
     Dates: end: 20210208
  4. CLEXANE [Suspect]
     Active Substance: ENOXAPARIN SODIUM
     Indication: THROMBOSIS PROPHYLAXIS
     Dosage: UNK
     Route: 058
     Dates: start: 20210207
  5. XYZAL [Concomitant]
     Active Substance: LEVOCETIRIZINE DIHYDROCHLORIDE
     Dosage: XYZAL TBL. 5MG (LEVOCETIRIZIN) 1 ? 0 ? 0 ? 0 VOM 08.02.21 BIS 09.02.21
  6. NOVALGIN (METAMIZOLE SODIUM) [Concomitant]
     Active Substance: METAMIZOLE SODIUM
     Dosage: NOVALGIN TBL. 500MG (METAMIZOL) 2 ? 2 ? 2 ? 2 BIS 08.02.21
  7. ASPIRINE [Suspect]
     Active Substance: ASPIRIN
     Dosage: UNK
  8. EUTHYROX [Concomitant]
     Active Substance: LEVOTHYROXINE SODIUM
     Dosage: EUTHYROX TBL. 100MCG (LEVOTHYROXIN) ALTERNIEREND 150/100MCG UM 7UHR MORGENS
  9. MOVICOL [MACROGOL 4000;POTASSIUM CHLORIDE;SODIUM BICARBONATE;SODIUM CH [Concomitant]
     Dosage: MOVICOL PLV. (MACROGOL) 1 BEUTEL ALLE 2 TAGE, BIS 09.02.21
     Dates: end: 20210209
  10. TOREM [TORASEMIDE] [Concomitant]
     Active Substance: TORSEMIDE
     Dosage: TOREM TBL. 10MG (TORASEMID) 1. 5 ? 1 ? 0 ? 0 BIS 10.02.21
  11. SERTRALINE HCL [Concomitant]
     Active Substance: SERTRALINE HYDROCHLORIDE
     Dosage: SERTRALIN TBL. 50MG (SERTRALIN) 0.5 ? 0 ? 0 ? 0 BIS 10.02.21
     Dates: end: 20210210

REACTIONS (2)
  - Humerus fracture [Unknown]
  - Fall [Unknown]

NARRATIVE: CASE EVENT DATE: 20210206
